FAERS Safety Report 25562004 (Version 1)
Quarter: 2025Q3

REPORT INFORMATION
  Report Type: 
  Country: CN (occurrence: CN)
  Receive Date: 20250716
  Receipt Date: 20250716
  Transmission Date: 20251021
  Serious: Yes (Life-Threatening)
  Sender: JIANGSU HANSOH PHARMACEUTICAL GROUP CO., LTD.
  Company Number: CN-Hansoh-20252190012376

PATIENT
  Age: 81 Year
  Sex: Male
  Weight: 57 kg

DRUGS (1)
  1. AZACITIDINE [Suspect]
     Active Substance: AZACITIDINE
     Indication: Acute myeloid leukaemia
     Dosage: 100MG,QD
     Route: 058
     Dates: start: 20250522, end: 20250528

REACTIONS (1)
  - Myelosuppression [Recovered/Resolved]

NARRATIVE: CASE EVENT DATE: 20250620
